FAERS Safety Report 5056050-8 (Version None)
Quarter: 2006Q2

REPORT INFORMATION
  Report Type: 
  Country: None (occurrence: None)
  Receive Date: 20060616
  Receipt Date: 20060504
  Transmission Date: 20061013
  Serious: No
  Sender: FDA-Public Use
  Company Number: 2006US001131

PATIENT
  Sex: Female

DRUGS (10)
  1. VESICARE [Suspect]
     Indication: HYPERTONIC BLADDER
     Dosage: 10 MG UID/QD ORAL
     Route: 048
     Dates: start: 20060401
  2. DITROPAN [Concomitant]
  3. ACTOS [Concomitant]
  4. AVAPRO [Concomitant]
  5. ZOCOR [Concomitant]
  6. ZOLOFT [Concomitant]
  7. MOBIC [Concomitant]
  8. POTASSIUM CHLORIDE [Concomitant]
  9. TIZANIDINE HCL [Concomitant]
  10. OLUX (CLOBETASOL PROPIONATE) [Concomitant]

REACTIONS (2)
  - CONSTIPATION [None]
  - OVERDOSE [None]
